FAERS Safety Report 14044415 (Version 1)
Quarter: 2017Q4

REPORT INFORMATION
  Report Type: Spontaneous
  Country: US (occurrence: US)
  Receive Date: 20171004
  Receipt Date: 20171004
  Transmission Date: 20180321
  Serious: Yes (Other)
  Sender: FDA-Public Use
  Company Number: None

PATIENT
  Age: 74 Year
  Sex: Female
  Weight: 79.2 kg

DRUGS (3)
  1. MORPHENE ECT [Concomitant]
  2. PROPOFOL. [Suspect]
     Active Substance: PROPOFOL
     Indication: INDUCTION OF ANAESTHESIA
     Dosage: ?          OTHER ROUTE:IV?
     Route: 042
     Dates: start: 20161104
  3. HYDROCODONE [Concomitant]
     Active Substance: HYDROCODONE

REACTIONS (3)
  - Derealisation [None]
  - Disorientation [None]
  - Aggression [None]

NARRATIVE: CASE EVENT DATE: 20161105
